FAERS Safety Report 6784968-4 (Version None)
Quarter: 2010Q2

REPORT INFORMATION
  Report Type: 
  Country: None (occurrence: None)
  Receive Date: 20100622
  Receipt Date: 20100611
  Transmission Date: 20101027
  Serious: Yes (Other)
  Sender: FDA-Public Use
  Company Number: US-JNJCH-2010011628

PATIENT
  Sex: Male
  Weight: 15.4 kg

DRUGS (3)
  1. CHILDREN'S BENADRYL ALLERGY [Suspect]
     Indication: HYPERSENSITIVITY
     Dosage: TEXT:ONE TEASPOONFUL DAILY AS NEEDED
     Route: 048
     Dates: start: 20090101, end: 20100101
  2. CHILDREN'S TYLENOL SUSPENSION [Suspect]
     Indication: PYREXIA
     Dosage: TEXT:ONE TEASPOONFUL EVERY EIGHT HOURS
     Route: 048
     Dates: start: 20100101, end: 20100101
  3. CHILDREN'S MOTRIN [Suspect]
     Indication: PYREXIA
     Dosage: TEXT:ONE TEASPOONFUL EVERY EIGHT HOURS
     Route: 048
     Dates: start: 20100101, end: 20100101

REACTIONS (5)
  - COUGH [None]
  - PRODUCT QUALITY ISSUE [None]
  - PYREXIA [None]
  - VIRAL INFECTION [None]
  - VOMITING [None]
